FAERS Safety Report 4837607-3 (Version None)
Quarter: 2005Q4

REPORT INFORMATION
  Report Type: 
  Country: None (occurrence: None)
  Receive Date: 20051024
  Receipt Date: 20050915
  Transmission Date: 20060501
  Serious: No
  Sender: FDA-Public Use
  Company Number: 216542

PATIENT

DRUGS (1)
  1. XOLAIR [Suspect]

REACTIONS (1)
  - MUSCLE ATROPHY [None]
